FAERS Safety Report 25136155 (Version 5)
Quarter: 2025Q2

REPORT INFORMATION
  Report Type: Spontaneous
  Country: US (occurrence: US)
  Receive Date: 20250328
  Receipt Date: 20250522
  Transmission Date: 20250716
  Serious: No
  Sender: PFIZER
  Company Number: US-PFIZER INC-202500060652

PATIENT
  Age: 10 Year
  Sex: Female
  Weight: 47.619 kg

DRUGS (3)
  1. GENOTROPIN [Suspect]
     Active Substance: SOMATROPIN
     Indication: Growth hormone deficiency
     Dates: start: 2022
  2. HYDROCORTISONE [Concomitant]
     Active Substance: HYDROCORTISONE
     Dosage: 5 MG, 3X/DAY
  3. LEVOTHYROXINE [Concomitant]
     Active Substance: LEVOTHYROXINE
     Dosage: 100 UG, DAILY

REACTIONS (3)
  - Drug dose omission by device [Unknown]
  - Device physical property issue [Unknown]
  - Expired device used [Unknown]

NARRATIVE: CASE EVENT DATE: 20250316
